FAERS Safety Report 24889085 (Version 2)
Quarter: 2025Q1

REPORT INFORMATION
  Report Type: Report from Study
  Country: US (occurrence: US)
  Receive Date: 20250127
  Receipt Date: 20250211
  Transmission Date: 20250409
  Serious: Yes (Hospitalization, Other)
  Sender: TAKEDA
  Company Number: US-TAKEDA-2024TUS104111

PATIENT
  Sex: Female

DRUGS (2)
  1. MARIBAVIR [Suspect]
     Active Substance: MARIBAVIR
     Indication: Cytomegalovirus infection
     Dosage: 400 MILLIGRAM, BID
     Dates: start: 20241009
  2. MARIBAVIR [Suspect]
     Active Substance: MARIBAVIR
     Dosage: 400 MILLIGRAM, BID

REACTIONS (10)
  - Pulmonary embolism [Unknown]
  - Pneumonia [Unknown]
  - Dehydration [Unknown]
  - Abnormal dreams [Unknown]
  - Disorientation [Unknown]
  - Tremor [Unknown]
  - Urinary tract infection [Unknown]
  - Gastrointestinal disorder [Unknown]
  - Feeding disorder [Unknown]
  - Decreased appetite [Unknown]
